FAERS Safety Report 18533437 (Version 1)
Quarter: 2020Q4

REPORT INFORMATION
  Report Type: Spontaneous
  Country: US (occurrence: US)
  Receive Date: 20201119
  Receipt Date: 20201119
  Transmission Date: 20210114
  Serious: Yes (Hospitalization)
  Sender: FDA-Public Use
  Company Number: None

PATIENT
  Age: 77 Year
  Sex: Male
  Weight: 77.7 kg

DRUGS (1)
  1. BAMLANIVIMAB. [Suspect]
     Active Substance: BAMLANIVIMAB

REACTIONS (7)
  - Chills [None]
  - Oxygen saturation [None]
  - Pneumonia viral [None]
  - Decreased appetite [None]
  - Moaning [None]
  - Nasopharyngitis [None]
  - Confusional state [None]

NARRATIVE: CASE EVENT DATE: 20201118
